FAERS Safety Report 6339072-6 (Version None)
Quarter: 2009Q3

REPORT INFORMATION
  Report Type: 
  Country: None (occurrence: None)
  Receive Date: 20090903
  Receipt Date: 20090826
  Transmission Date: 20100115
  Serious: Yes (Hospitalization)
  Sender: FDA-Public Use
  Company Number: ES-ROCHE-652636

PATIENT
  Age: 75 Year
  Sex: Male

DRUGS (1)
  1. TAMIFLU [Suspect]
     Dosage: FREQUENCY: DAY, DRUG INTERRUPTED
     Route: 048
     Dates: start: 20090811, end: 20090813

REACTIONS (1)
  - HEPATITIS CHOLESTATIC [None]
